FAERS Safety Report 18546230 (Version 1)
Quarter: 2020Q4

REPORT INFORMATION
  Report Type: Spontaneous
  Country: US (occurrence: US)
  Receive Date: 20201125
  Receipt Date: 20201125
  Transmission Date: 20210114
  Serious: Yes (Disabling, Other)
  Sender: FDA-Public Use
  Company Number: US-PURDUE-USA-2020-0177235

PATIENT
  Sex: Male

DRUGS (8)
  1. OXYCONTIN [Suspect]
     Active Substance: OXYCODONE HYDROCHLORIDE
     Dosage: 300 MG, DAILY
     Route: 048
  2. HYDROCODONE BITARTRATE (SIMILAR TO NDA 206627) [Suspect]
     Active Substance: HYDROCODONE BITARTRATE
     Indication: PAIN
     Dosage: UNK, UNK
     Route: 048
  3. PERCOCET                           /00446701/ [Suspect]
     Active Substance: ACETAMINOPHEN\OXYCODONE HYDROCHLORIDE\OXYCODONE TEREPHTHALATE
     Indication: PAIN
     Dosage: UNK, UNK
     Route: 065
  4. OXYCONTIN [Suspect]
     Active Substance: OXYCODONE HYDROCHLORIDE
     Indication: PAIN
     Dosage: 10 MG, UNK
     Route: 048
     Dates: start: 199706
  5. SENOKOT [Suspect]
     Active Substance: SENNOSIDES
     Indication: PAIN
     Dosage: UNK, UNK
     Route: 065
  6. AMBIEN [Suspect]
     Active Substance: ZOLPIDEM TARTRATE
     Indication: PAIN
     Dosage: UNK, UNK
     Route: 065
  7. OXYCODONE HYDROCHLORIDE (SIMILAR TO NDA 22-272) [Suspect]
     Active Substance: OXYCODONE HYDROCHLORIDE
     Indication: PAIN
     Dosage: UNK, UNK
     Route: 048
  8. COLACE [Suspect]
     Active Substance: DOCUSATE SODIUM
     Indication: PAIN
     Dosage: UNK, UNK
     Route: 065

REACTIONS (29)
  - Surgery [Unknown]
  - Amnesia [Unknown]
  - Depression [Unknown]
  - Migraine [Unknown]
  - Hypotonia [Unknown]
  - Muscle twitching [Unknown]
  - Nerve injury [Unknown]
  - Disability [Unknown]
  - Weight decreased [Unknown]
  - Dysphemia [Unknown]
  - Suicidal ideation [Unknown]
  - Insomnia [Unknown]
  - Eating disorder [Unknown]
  - Blood testosterone decreased [Unknown]
  - Constipation [Unknown]
  - Arthritis [Unknown]
  - Drug dependence [Unknown]
  - Anger [Unknown]
  - Pain [Unknown]
  - Restless legs syndrome [Unknown]
  - Complex regional pain syndrome [Unknown]
  - Personality change [Unknown]
  - Dental caries [Unknown]
  - Anxiety [Unknown]
  - Osteoporosis [Unknown]
  - Asthenia [Unknown]
  - Disturbance in attention [Unknown]
  - Vision blurred [Unknown]
  - Mood altered [Unknown]
